FAERS Safety Report 21920759 (Version 1)
Quarter: 2023Q1

REPORT INFORMATION
  Report Type: Spontaneous
  Country: US (occurrence: None)
  Receive Date: 20230126
  Receipt Date: 20230126
  Transmission Date: 20230418
  Serious: No
  Sender: FDA-Public Use
  Company Number: None

PATIENT
  Age: 38 Year
  Sex: Male

DRUGS (1)
  1. TREMFYA [Suspect]
     Active Substance: GUSELKUMAB
     Indication: Psoriasis
     Dosage: INJECT 100MG  SUBCUTANEOUSLY  EVERY 8 WEEKS AS DIRECTED?
     Route: 058
     Dates: start: 202109

REACTIONS (2)
  - Influenza [None]
  - Therapy interrupted [None]
